FAERS Safety Report 7505465-4 (Version None)
Quarter: 2011Q2

REPORT INFORMATION
  Report Type: 
  Country: None (occurrence: None)
  Receive Date: 20110519
  Receipt Date: 20110512
  Transmission Date: 20111010
  Serious: Yes (Other)
  Sender: FDA-Public Use
  Company Number: 2011SP021827

PATIENT
  Age: 25 Year
  Sex: Female
  Weight: 63 kg

DRUGS (2)
  1. NEXPLANON (ETONOGESTREL /01502301/) [Suspect]
  2. NEXPLANON (ETONOGESTREL /01502301/) [Suspect]
     Indication: CONTRACEPTION
     Dosage: 68 MG; SBDE
     Route: 059
     Dates: start: 20101222

REACTIONS (1)
  - DEVICE BREAKAGE [None]
